FAERS Safety Report 12943332 (Version 1)
Quarter: 2016Q4

REPORT INFORMATION
  Report Type: Spontaneous
  Country: US (occurrence: US)
  Receive Date: 20161115
  Receipt Date: 20161115
  Transmission Date: 20170207
  Serious: No
  Sender: FDA-Public Use
  Company Number: US-NOVOPROD-510279

PATIENT
  Age: 60 Year
  Sex: Female

DRUGS (2)
  1. VITAMIN B12 [Concomitant]
     Active Substance: CYANOCOBALAMIN
     Indication: PRODUCT USED FOR UNKNOWN INDICATION
  2. VAGIFEM LD [Suspect]
     Active Substance: ESTRADIOL
     Indication: PRODUCT USED FOR UNKNOWN INDICATION
     Dosage: UNKNOWN
     Route: 067
     Dates: start: 201601, end: 2016

REACTIONS (15)
  - Gastrooesophageal reflux disease [Recovered/Resolved]
  - Lethargy [Recovered/Resolved]
  - Nausea [Recovered/Resolved]
  - Insomnia [Recovered/Resolved]
  - Headache [Recovered/Resolved]
  - Decreased appetite [Recovered/Resolved]
  - Myalgia [Recovered/Resolved]
  - Gastric pH decreased [Recovered/Resolved]
  - Arthritis [Recovered/Resolved]
  - Formication [Recovered/Resolved]
  - Bladder discomfort [Recovered/Resolved]
  - Wheezing [Recovered/Resolved]
  - Palpitations [Recovered/Resolved]
  - Feeling abnormal [Recovered/Resolved]
  - Hypoaesthesia [Recovered/Resolved]

NARRATIVE: CASE EVENT DATE: 20160603
